FAERS Safety Report 20747349 (Version 1)
Quarter: 2022Q2

REPORT INFORMATION
  Report Type: Spontaneous
  Country: US (occurrence: US)
  Receive Date: 20220425
  Receipt Date: 20220425
  Transmission Date: 20220720
  Serious: No
  Sender: FDA-Public Use
  Company Number: US-SANOFI-01065032

PATIENT
  Age: 71 Year
  Sex: Male

DRUGS (1)
  1. LANTUS SOLOSTAR [Suspect]
     Active Substance: INSULIN GLARGINE
     Dosage: 72 UNITS IN THE MORNING AND 72U AT NIGHT
     Route: 065

REACTIONS (2)
  - Product use issue [Unknown]
  - Wrong technique in device usage process [Unknown]
